FAERS Safety Report 10311802 (Version 1)
Quarter: 2014Q3

REPORT INFORMATION
  Report Type: Spontaneous
  Country: US (occurrence: US)
  Receive Date: 20140717
  Receipt Date: 20140717
  Transmission Date: 20150326
  Serious: Yes (Other)
  Sender: FDA-Public Use
  Company Number: US-BAYER-2014-104095

PATIENT
  Age: 44 Year
  Sex: Female

DRUGS (2)
  1. BETASERON [Suspect]
     Active Substance: INTERFERON BETA-1B
     Indication: MULTIPLE SCLEROSIS
     Dosage: UNK
     Dates: start: 2003, end: 2011
  2. AVONEX [Concomitant]
     Active Substance: INTERFERON BETA-1A
     Dosage: UNK
     Dates: start: 2002

REACTIONS (5)
  - Peripheral venous disease [None]
  - Angioplasty [None]
  - Peripheral venous disease [None]
  - Angioplasty [None]
  - Angioplasty [None]

NARRATIVE: CASE EVENT DATE: 2010
